FAERS Safety Report 9538434 (Version 1)
Quarter: 2013Q2

REPORT INFORMATION
  Report Type: Spontaneous
  Country: US (occurrence: None)
  Receive Date: 20130510
  Receipt Date: 20130510
  Transmission Date: 20140414
  Serious: Yes (Other)
  Sender: FDA-Public Use
  Company Number: US-010925

PATIENT
  Age: 70 Year
  Sex: Male

DRUGS (1)
  1. ZIOPTAN [Suspect]
     Indication: GLAUCOMA

REACTIONS (1)
  - Multiple use of single-use product [None]
